FAERS Safety Report 8375953-X (Version None)
Quarter: 2012Q2

REPORT INFORMATION
  Report Type: 
  Country: None (occurrence: None)
  Receive Date: 20120522
  Receipt Date: 20120517
  Transmission Date: 20120825
  Serious: Yes (Death)
  Sender: FDA-Public Use
  Company Number: US-ASTELLAS-2011US007733

PATIENT
  Sex: Male

DRUGS (4)
  1. ERLOTINIB HYDROCHLORIDE [Suspect]
     Indication: LUNG CARCINOMA CELL TYPE UNSPECIFIED STAGE 0
     Dosage: 150 MG, UNKNOWN/D
     Route: 048
     Dates: start: 20111101, end: 20111101
  2. ERLOTINIB HYDROCHLORIDE [Suspect]
     Dosage: 150 MG, UNKNOWN/D
     Route: 048
     Dates: start: 20111101
  3. ERLOTINIB HYDROCHLORIDE [Suspect]
     Dosage: 75 MG, UID/QD
     Route: 048
     Dates: start: 20111129, end: 20120412
  4. ERLOTINIB HYDROCHLORIDE [Suspect]
     Dosage: 25 MG, UID/QD
     Route: 048
     Dates: start: 20111108

REACTIONS (4)
  - CONSTIPATION [None]
  - SWELLING FACE [None]
  - DEATH [None]
  - EYE SWELLING [None]
